FAERS Safety Report 23820637 (Version 1)
Quarter: 2024Q2

REPORT INFORMATION
  Report Type: Spontaneous
  Country: US (occurrence: None)
  Receive Date: 20240503
  Receipt Date: 20240503
  Transmission Date: 20240716
  Serious: Yes (Hospitalization)
  Sender: FDA-Public Use
  Company Number: None

PATIENT
  Sex: Male

DRUGS (1)
  1. TEPMETKO [Suspect]
     Active Substance: TEPOTINIB HYDROCHLORIDE
     Indication: Lung neoplasm malignant
     Dosage: 450 MG DAILY ORAL
     Route: 048
     Dates: start: 20240329

REACTIONS (5)
  - Drug ineffective [None]
  - Fatigue [None]
  - Movement disorder [None]
  - Cardiac failure [None]
  - Balance disorder [None]
